FAERS Safety Report 7891526-7 (Version None)
Quarter: 2011Q4

REPORT INFORMATION
  Report Type: 
  Country: None (occurrence: None)
  Receive Date: 20111103
  Receipt Date: 20110804
  Transmission Date: 20120403
  Serious: No
  Sender: FDA-Public Use
  Company Number: US-AMGEN-USASP2011039545

PATIENT
  Age: 55 Year
  Sex: Female

DRUGS (3)
  1. ARAVA [Concomitant]
     Dosage: 1 MG, QD
     Dates: start: 20090101, end: 20110715
  2. PLAQUENIL [Concomitant]
     Dosage: 1 MG, QD
     Dates: start: 20010101
  3. ENBREL [Suspect]
     Indication: RHEUMATOID ARTHRITIS
     Dosage: 50 MG, QWK
     Dates: start: 20030101

REACTIONS (1)
  - WHITE BLOOD CELL COUNT DECREASED [None]
